FAERS Safety Report 7647300-X (Version None)
Quarter: 2011Q3

REPORT INFORMATION
  Report Type: 
  Country: None (occurrence: None)
  Receive Date: 20110801
  Receipt Date: 20110725
  Transmission Date: 20111222
  Serious: Yes (Other)
  Sender: FDA-Public Use
  Company Number: US-BAYER-2011-049635

PATIENT
  Sex: Female

DRUGS (1)
  1. MIRENA [Suspect]
     Indication: CONTRACEPTION
     Dosage: UNK
     Dates: start: 20090901, end: 20110523

REACTIONS (4)
  - URINARY TRACT INFECTION [None]
  - DYSPAREUNIA [None]
  - VAGINAL INFECTION [None]
  - VULVOVAGINAL DRYNESS [None]
